FAERS Safety Report 6127897-1 (Version None)
Quarter: 2009Q1

REPORT INFORMATION
  Report Type: 
  Country: None (occurrence: None)
  Receive Date: 20090320
  Receipt Date: 20090320
  Transmission Date: 20090719
  Serious: Yes (Life-Threatening, Hospitalization)
  Sender: FDA-Public Use
  Company Number: None

PATIENT
  Age: 68 Year
  Sex: Female
  Weight: 65.7716 kg

DRUGS (10)
  1. PAPAVERINE HCL [Suspect]
     Indication: MENIERE'S DISEASE
     Dosage: 150 MG SEE NOTES * ORAL
     Route: 048
     Dates: start: 20061001, end: 20080301
  2. PAPAVERINE HCL [Suspect]
     Indication: VERTIGO
     Dosage: 150 MG SEE NOTES * ORAL
     Route: 048
     Dates: start: 20061001, end: 20080301
  3. ASPIRIN [Concomitant]
  4. BONIVA [Concomitant]
  5. ELMIRON [Concomitant]
  6. ESTRING [Concomitant]
  7. HYDROCHLOROTHIAZIDE [Concomitant]
  8. LEVOTHYROXINE SODIUM [Concomitant]
  9. VYTORIN [Concomitant]
  10. ZOLOFT [Concomitant]

REACTIONS (8)
  - ACTIVITIES OF DAILY LIVING IMPAIRED [None]
  - ADAMS-STOKES SYNDROME [None]
  - ATRIOVENTRICULAR BLOCK COMPLETE [None]
  - CONVULSION [None]
  - DRUG INEFFECTIVE [None]
  - FALL [None]
  - FATIGUE [None]
  - MEMORY IMPAIRMENT [None]
